FAERS Safety Report 25289785 (Version 3)
Quarter: 2025Q2

REPORT INFORMATION
  Report Type: Spontaneous
  Country: US (occurrence: US)
  Receive Date: 20250509
  Receipt Date: 20250521
  Transmission Date: 20250716
  Serious: Yes (Other)
  Sender: GE HEALTHCARE
  Company Number: US-GE HEALTHCARE-2025CSU005608

PATIENT
  Age: 54 Year
  Sex: Female
  Weight: 66.213 kg

DRUGS (1)
  1. VIZAMYL [Suspect]
     Active Substance: FLUTEMETAMOL F-18
     Indication: Diagnostic procedure
     Route: 065
     Dates: start: 20250429, end: 20250429

REACTIONS (12)
  - Autoscopy [Not Recovered/Not Resolved]
  - Brain fog [Not Recovered/Not Resolved]
  - Balance disorder [Not Recovered/Not Resolved]
  - Throat tightness [Recovered/Resolved]
  - Parosmia [Recovered/Resolved]
  - Retching [Recovered/Resolved]
  - Cough [Recovered/Resolved]
  - Flushing [Recovered/Resolved]
  - Blood pressure increased [Recovered/Resolved]
  - Headache [Not Recovered/Not Resolved]
  - Dizziness [Recovered/Resolved]
  - Nausea [Recovered/Resolved]

NARRATIVE: CASE EVENT DATE: 20250429
